FAERS Safety Report 10584201 (Version 1)
Quarter: 2014Q4

REPORT INFORMATION
  Report Type: Spontaneous
  Country: US (occurrence: None)
  Receive Date: 20141113
  Receipt Date: 20141113
  Transmission Date: 20150529
  Serious: Yes (Disabling)
  Sender: FDA-Public Use
  Company Number: None

PATIENT
  Age: 31 Year
  Sex: Female
  Weight: 83.92 kg

DRUGS (2)
  1. SULFAMETHOX-TMP DS [Suspect]
     Active Substance: SULFAMETHOXAZOLE\TRIMETHOPRIM
     Dosage: 1 PILL
     Route: 048
  2. SULFAMETHOX-TMP DS [Suspect]
     Active Substance: SULFAMETHOXAZOLE\TRIMETHOPRIM
     Indication: ARTHROPOD BITE
     Dosage: 1 PILL
     Route: 048

REACTIONS (2)
  - Vertigo [None]
  - Vomiting [None]

NARRATIVE: CASE EVENT DATE: 20141111
